FAERS Safety Report 12955807 (Version 1)
Quarter: 2016Q4

REPORT INFORMATION
  Report Type: Spontaneous
  Country: US (occurrence: US)
  Receive Date: 20161118
  Receipt Date: 20161118
  Transmission Date: 20170207
  Serious: No
  Sender: FDA-Public Use
  Company Number: US-GLAXOSMITHKLINE-US2016170322

PATIENT
  Age: 71 Year
  Sex: Female

DRUGS (21)
  1. ADVAIR DISKUS [Suspect]
     Active Substance: FLUTICASONE PROPIONATE\SALMETEROL XINAFOATE
     Indication: ASTHMA
     Dosage: 1 DF, BID
     Route: 055
     Dates: start: 20161115
  2. CYANOCOBALAMIN. [Concomitant]
     Active Substance: CYANOCOBALAMIN
  3. EFFEXOR XR [Concomitant]
     Active Substance: VENLAFAXINE HYDROCHLORIDE
  4. KLONOPIN [Concomitant]
     Active Substance: CLONAZEPAM
  5. TYLENOL [Concomitant]
     Active Substance: ACETAMINOPHEN
  6. CARVEDILOL. [Concomitant]
     Active Substance: CARVEDILOL
  7. METFORMIN [Concomitant]
     Active Substance: METFORMIN HYDROCHLORIDE
  8. SINGULAIR [Concomitant]
     Active Substance: MONTELUKAST SODIUM
  9. AMIODARONE [Concomitant]
     Active Substance: AMIODARONE
  10. TRAMADOL. [Concomitant]
     Active Substance: TRAMADOL
  11. ALBUTEROL. [Concomitant]
     Active Substance: ALBUTEROL
  12. NEURONTIN [Concomitant]
     Active Substance: GABAPENTIN
  13. VITAMIN C [Concomitant]
     Active Substance: ASCORBIC ACID
  14. IRON PILL [Concomitant]
     Active Substance: IRON
  15. POTASSIUM [Concomitant]
     Active Substance: POTASSIUM
  16. PRAVASTATIN. [Concomitant]
     Active Substance: PRAVASTATIN
  17. VITAMIN D [Concomitant]
     Active Substance: CHOLECALCIFEROL
  18. WARFARIN [Concomitant]
     Active Substance: WARFARIN
  19. CALCIUM [Concomitant]
     Active Substance: CALCIUM
  20. MULTIVITAMIN [Concomitant]
     Active Substance: VITAMINS
  21. OMEPRAZOL [Concomitant]
     Active Substance: OMEPRAZOLE

REACTIONS (4)
  - Wrong technique in product usage process [Unknown]
  - Diarrhoea [Not Recovered/Not Resolved]
  - Device use error [Unknown]
  - Circumstance or information capable of leading to medication error [Unknown]

NARRATIVE: CASE EVENT DATE: 20161116
